FAERS Safety Report 8335047-6 (Version None)
Quarter: 2012Q1

REPORT INFORMATION
  Report Type: 
  Country: None (occurrence: None)
  Receive Date: 20120329
  Receipt Date: 20090422
  Transmission Date: 20120608
  Serious: Yes (Other)
  Sender: FDA-Public Use
  Company Number: PHEH2009US04085

PATIENT
  Age: 71 Year
  Sex: Female

DRUGS (1)
  1. EXELON [Suspect]
     Dosage: 9.5 MG

REACTIONS (3)
  - SWOLLEN TONGUE [None]
  - SWELLING FACE [None]
  - DYSARTHRIA [None]
